FAERS Safety Report 4623364-2 (Version None)
Quarter: 2005Q1

REPORT INFORMATION
  Report Type: 
  Country: None (occurrence: None)
  Receive Date: 20050330
  Receipt Date: 20050318
  Transmission Date: 20050727
  Serious: Yes (Disabling, Other)
  Sender: FDA-Public Use
  Company Number: 2005033679

PATIENT
  Age: 57 Year
  Sex: Female

DRUGS (15)
  1. PREDNISONE TAB [Suspect]
     Indication: ADRENAL INSUFFICIENCY
     Dosage: ORAL
     Route: 048
     Dates: start: 19540101
  2. ASPIRIN [Suspect]
     Indication: PAIN
     Dosage: ORAL
     Route: 048
  3. ACETAMINOPHEN [Suspect]
     Indication: PAIN
     Dosage: ORAL
     Route: 048
  4. IBUPROFEN [Suspect]
     Indication: PAIN
     Dosage: ORAL
     Route: 048
  5. ALENDRONATE SODIUM [Suspect]
     Indication: OSTEOPENIA
     Dosage: ORAL
     Route: 048
     Dates: start: 19960101
  6. CAFFEINE (CAFFEINE) [Suspect]
     Indication: ILL-DEFINED DISORDER
     Dosage: ORAL
     Route: 048
  7. ZOLPIDEM TARTRATE [Concomitant]
  8. BECOSYM FORTE (NICOTINAMIDE, PYRIDOXINE HYDROCHLORIDE, RIBOFLAVIN, THI [Concomitant]
  9. ASCORBIC ACID [Concomitant]
  10. CHILDRENS CHEWABLE VITAMINS (VITAMINS NOS) [Concomitant]
  11. GLUCOSAMINE (GLUCOSAMINE) [Concomitant]
  12. ATORVASTATIN (ATORVASTATIN) [Concomitant]
  13. SIMVASTATIN [Concomitant]
  14. EZETIMIBE (EZETIMIBE) [Concomitant]
  15. ROSUVASTATIN (ROSUVASTATIN) [Concomitant]

REACTIONS (12)
  - BLOOD CHOLESTEROL INCREASED [None]
  - BONE DISORDER [None]
  - CHONDROPATHY [None]
  - DERMATITIS [None]
  - DRUG EFFECT DECREASED [None]
  - DYSPEPSIA [None]
  - EATING DISORDER [None]
  - INSOMNIA [None]
  - OSTEOARTHRITIS [None]
  - PAIN [None]
  - PAIN IN EXTREMITY [None]
  - WEIGHT INCREASED [None]
